FAERS Safety Report 21626736 (Version 4)
Quarter: 2023Q2

REPORT INFORMATION
  Report Type: Spontaneous
  Country: JP (occurrence: JP)
  Receive Date: 20221122
  Receipt Date: 20230615
  Transmission Date: 20230722
  Serious: Yes (Hospitalization, Disabling, Other)
  Sender: FDA-Public Use
  Company Number: JP-ASTELLAS-2022JP016898

PATIENT
  Sex: Female
  Weight: 61.5 kg

DRUGS (21)
  1. VESICARE [Suspect]
     Active Substance: SOLIFENACIN SUCCINATE
     Indication: Hypertonic bladder
     Dosage: 2.5 MG, ONCE DAILY (AFTER BREAKFAST)
     Route: 048
     Dates: end: 20200806
  2. VESICARE [Suspect]
     Active Substance: SOLIFENACIN SUCCINATE
     Indication: Neurogenic bladder
  3. ZOPICLONE [Suspect]
     Active Substance: ZOPICLONE
     Indication: Insomnia
     Dosage: 7.5 MG, ONCE DAILY (AT BEDTIME)
     Route: 048
     Dates: end: 20200806
  4. LORAZEPAM [Suspect]
     Active Substance: LORAZEPAM
     Indication: Insomnia
     Dosage: 1 MG, AS NEEDED (2-3 TIMES IN ANXIETY)
     Route: 048
  5. LORAZEPAM [Suspect]
     Active Substance: LORAZEPAM
     Indication: Depression
  6. LORAZEPAM [Suspect]
     Active Substance: LORAZEPAM
     Indication: Insomnia
     Dosage: 0.5 MG, AS NEEDED (IN ANXIETY (AT BEDTIME))
     Route: 048
  7. DESYREL [Suspect]
     Active Substance: TRAZODONE HYDROCHLORIDE
     Indication: Depression
     Dosage: 25 MG, ONCE DAILY (AT BEDTIME)
     Route: 048
     Dates: end: 20200806
  8. TRICHLORMETHIAZIDE [Suspect]
     Active Substance: TRICHLORMETHIAZIDE
     Indication: Lymphoedema
     Dosage: 1 MG, ONCE DAILY (AFTER BREAKFAST)
     Route: 048
     Dates: end: 20200813
  9. TRICHLORMETHIAZIDE [Suspect]
     Active Substance: TRICHLORMETHIAZIDE
     Indication: Hypertension
  10. AZOSEMIDE [Suspect]
     Active Substance: AZOSEMIDE
     Indication: Lymphoedema
     Dosage: 30 MG, ONCE DAILY (AFTER BREAKFAST)
     Route: 048
     Dates: end: 20200806
  11. AZELNIDIPINE [Suspect]
     Active Substance: AZELNIDIPINE
     Indication: Hypertension
     Dosage: 8 MG, ONCE DAILY (AFTER BREAKFAST)
     Route: 048
     Dates: end: 20200806
  12. BELSOMRA [Concomitant]
     Active Substance: SUVOREXANT
     Indication: Insomnia
     Dosage: 15 MG, ONCE DAILY (AT BEDTIME)
     Route: 048
     Dates: end: 20200831
  13. TELMISARTAN [Concomitant]
     Active Substance: TELMISARTAN
     Indication: Hypertension
     Dosage: 20 MG, ONCE DAILY (AFTER BREAKFAST)
     Route: 048
  14. TELMISARTAN [Concomitant]
     Active Substance: TELMISARTAN
     Indication: Hypertension
     Dosage: 40 MG, ONCE DAILY (AFTER BREAKFAST)
     Route: 048
     Dates: start: 20200806
  15. LIMAPROST [Concomitant]
     Active Substance: LIMAPROST
     Indication: Product used for unknown indication
     Dosage: 5 ?G, EVERY 12 HOURS (AFTER BREAKFAST/DINNER)
     Route: 048
     Dates: end: 20200806
  16. ALFACALCIDOL [Concomitant]
     Active Substance: ALFACALCIDOL
     Indication: Osteoporosis
     Dosage: 0.5 ?G, ONCE DAILY (AFTER BREAKFAST)
     Route: 048
  17. LYRICA [Concomitant]
     Active Substance: PREGABALIN
     Indication: Product used for unknown indication
     Dosage: 25 MG, EVERY 12 HOURS (AFTER BREAKFAST, AT BEDTIME)
     Route: 048
     Dates: end: 20200806
  18. ATORVASTATIN [Concomitant]
     Active Substance: ATORVASTATIN
     Indication: Dyslipidaemia
     Dosage: 5 MG, ONCE DAILY (AFTER DINNER)
     Route: 048
     Dates: end: 20200806
  19. REBAMIPIDE [Concomitant]
     Active Substance: REBAMIPIDE
     Indication: Product used for unknown indication
     Dosage: 100 MG, EVERY 12 HOURS (AFTER BREAKFAST/DINNER)
     Route: 048
     Dates: end: 20200806
  20. Lorcam [Concomitant]
     Indication: Product used for unknown indication
     Dosage: 4 MG, EVERY 12 HOURS (AFTER BREAKFAST/DINNER)
     Route: 048
     Dates: end: 20200806
  21. ALENDRONATE [Concomitant]
     Active Substance: ALENDRONATE SODIUM
     Indication: Osteoporosis
     Dosage: 35 MG, ONCE WEEKLY (WHEN WAKING UP)
     Route: 048

REACTIONS (7)
  - Cognitive disorder [Not Recovered/Not Resolved]
  - Fall [Not Recovered/Not Resolved]
  - Rib fracture [Unknown]
  - Fall [Unknown]
  - Nocturia [Not Recovered/Not Resolved]
  - Hypokalaemia [Recovered/Resolved]
  - Oedema [Recovered/Resolved]

NARRATIVE: CASE EVENT DATE: 20180101
